FAERS Safety Report 5571094-5 (Version None)
Quarter: 2007Q4

REPORT INFORMATION
  Report Type: 
  Country: None (occurrence: None)
  Receive Date: 20071221
  Receipt Date: 20071218
  Transmission Date: 20080405
  Serious: Yes (Hospitalization)
  Sender: FDA-Public Use
  Company Number: JP-ASTRAZENECA-2007AP08070

PATIENT
  Age: 37 Year
  Sex: Female

DRUGS (5)
  1. ANAPEINE INJECTION [Suspect]
     Indication: EPIDURAL ANAESTHESIA
     Route: 008
     Dates: start: 20071214, end: 20071214
  2. XYLOCAINE [Suspect]
     Indication: INFILTRATION ANAESTHESIA
     Route: 061
     Dates: start: 20071214, end: 20071214
  3. XYLOCAINE [Suspect]
     Indication: EPIDURAL ANAESTHESIA
     Route: 061
     Dates: start: 20071214, end: 20071214
  4. XYLOCAINE [Suspect]
     Dosage: TEST DOSE
     Route: 008
     Dates: start: 20071214, end: 20071214
  5. XYLOCAINE [Suspect]
     Dosage: TEST DOSE
     Route: 008
     Dates: start: 20071214, end: 20071214

REACTIONS (3)
  - AGITATION [None]
  - CONVULSION [None]
  - LOGORRHOEA [None]
